FAERS Safety Report 12262435 (Version 2)
Quarter: 2016Q2

REPORT INFORMATION
  Report Type: Spontaneous
  Country: CA (occurrence: CA)
  Receive Date: 20160413
  Receipt Date: 20160427
  Transmission Date: 20160815
  Serious: Yes (Other)
  Sender: FDA-Public Use
  Company Number: CA-BEH-2016061139

PATIENT
  Age: 13 Year
  Sex: Male

DRUGS (5)
  1. HIZENTRA [Suspect]
     Active Substance: HUMAN IMMUNOGLOBULIN G
     Indication: PRODUCT USED FOR UNKNOWN INDICATION
     Dosage: PUMP INFUSION
  2. HIZENTRA [Suspect]
     Active Substance: HUMAN IMMUNOGLOBULIN G
     Dosage: MAINTAINED OVER LAST 2.5 YEARS
     Dates: start: 201312
  3. HIZENTRA [Suspect]
     Active Substance: HUMAN IMMUNOGLOBULIN G
     Dosage: 5ML 4X/WEEK, THEN WORKED UP TO 10ML 2X/WEEK
     Dates: start: 20130215
  4. HIZENTRA [Suspect]
     Active Substance: HUMAN IMMUNOGLOBULIN G
     Dosage: GIVEN AS 10ML 3X/WEEK
     Dates: start: 20130906
  5. HIZENTRA [Suspect]
     Active Substance: HUMAN IMMUNOGLOBULIN G
     Dates: start: 20130807

REACTIONS (5)
  - Infection [Unknown]
  - Blood immunoglobulin G decreased [Unknown]
  - Infusion site nodule [Unknown]
  - Immunoglobulins decreased [Unknown]
  - Infusion site discomfort [Unknown]

NARRATIVE: CASE EVENT DATE: 2014
